FAERS Safety Report 23767941 (Version 1)
Quarter: 2024Q2

REPORT INFORMATION
  Report Type: Spontaneous
  Country: ES (occurrence: ES)
  Receive Date: 20240422
  Receipt Date: 20240422
  Transmission Date: 20240716
  Serious: Yes (Other)
  Sender: FDA-Public Use
  Company Number: None

PATIENT
  Age: 63 Year
  Sex: Female

DRUGS (11)
  1. CISPLATIN [Interacting]
     Active Substance: CISPLATIN
     Indication: Haemophagocytic lymphohistiocytosis
     Dates: start: 20231116, end: 20231122
  2. ETOPOSIDE [Interacting]
     Active Substance: ETOPOSIDE
     Indication: Angiocentric lymphoma
     Dates: start: 20231015, end: 20231017
  3. GEMCITABINE [Interacting]
     Active Substance: GEMCITABINE
     Indication: Haemophagocytic lymphohistiocytosis
     Dates: start: 20231115, end: 20231122
  4. METHOTREXATE SODIUM [Interacting]
     Active Substance: METHOTREXATE SODIUM
     Indication: Haemophagocytic lymphohistiocytosis
     Dates: start: 20231014, end: 20231014
  5. ACETAMINOPHEN [Interacting]
     Active Substance: ACETAMINOPHEN
     Indication: Product used for unknown indication
     Dates: start: 20230928, end: 20231010
  6. ERTAPENEM [Interacting]
     Active Substance: ERTAPENEM
     Indication: Haemophagocytic lymphohistiocytosis
     Dates: start: 20231010, end: 20231013
  7. FLUCONAZOLE [Interacting]
     Active Substance: FLUCONAZOLE
     Indication: Haemophagocytic lymphohistiocytosis
     Dates: start: 20231101, end: 20231109
  8. AMOXICILLIN\CLAVULANATE POTASSIUM [Interacting]
     Active Substance: AMOXICILLIN\CLAVULANATE POTASSIUM
     Indication: Haemophagocytic lymphohistiocytosis
     Dates: start: 20230928, end: 20231009
  9. IFOSFAMIDE [Interacting]
     Active Substance: IFOSFAMIDE
     Indication: Haemophagocytic lymphohistiocytosis
     Dates: start: 20231015, end: 20231017
  10. FLUCONAZOLE [Interacting]
     Active Substance: FLUCONAZOLE
     Indication: Angiocentric lymphoma
     Dates: start: 20231012, end: 20231014
  11. GEMCITABINE [Interacting]
     Active Substance: GEMCITABINE
     Indication: Haemophagocytic lymphohistiocytosis
     Dates: start: 20231226, end: 20231226

REACTIONS (3)
  - Mixed liver injury [Recovered/Resolved]
  - Hyperbilirubinaemia [Recovered/Resolved]
  - Coagulopathy [Recovered/Resolved]

NARRATIVE: CASE EVENT DATE: 20231014
